FAERS Safety Report 19932455 (Version 1)
Quarter: 2021Q4

REPORT INFORMATION
  Report Type: Spontaneous
  Country: CA (occurrence: CA)
  Receive Date: 20211008
  Receipt Date: 20211008
  Transmission Date: 20220303
  Serious: Yes (Hospitalization)
  Sender: FDA-Public Use
  Company Number: CA-TEVA-2021-CA-1961997

PATIENT
  Age: 67 Year
  Sex: Male

DRUGS (6)
  1. SULFAMETHOXAZOLE\TRIMETHOPRIM [Suspect]
     Active Substance: SULFAMETHOXAZOLE\TRIMETHOPRIM
     Route: 065
  2. ACETAMINOPHEN [Concomitant]
     Active Substance: ACETAMINOPHEN
  3. DICLOFENAC [Concomitant]
     Active Substance: DICLOFENAC
  4. MELOXICAM [Concomitant]
     Active Substance: MELOXICAM
  5. MUPIROCIN [Concomitant]
     Active Substance: MUPIROCIN
  6. PANTOPRAZOLE [Concomitant]
     Active Substance: PANTOPRAZOLE

REACTIONS (5)
  - Epidermal necrosis [Unknown]
  - Erythema [Unknown]
  - Ocular hyperaemia [Unknown]
  - Pyrexia [Unknown]
  - Tachycardia [Unknown]
